FAERS Safety Report 8224631-6 (Version None)
Quarter: 2012Q1

REPORT INFORMATION
  Report Type: 
  Country: None (occurrence: None)
  Receive Date: 20120319
  Receipt Date: 20110722
  Transmission Date: 20120608
  Serious: No
  Sender: FDA-Public Use
  Company Number: USA/USA/11/0019172

PATIENT
  Age: 62 Year
  Sex: Female
  Weight: 67.586 kg

DRUGS (1)
  1. OXAPROZIN [Suspect]
     Indication: INFLAMMATION
     Dosage: 600 MG, AS REQUIRED, ORAL
     Route: 048
     Dates: start: 20110713

REACTIONS (2)
  - PRODUCT QUALITY ISSUE [None]
  - DRUG INEFFECTIVE [None]
